FAERS Safety Report 25030979 (Version 1)
Quarter: 2025Q1

REPORT INFORMATION
  Report Type: Report from Study
  Country: CN (occurrence: CN)
  Receive Date: 20250303
  Receipt Date: 20250303
  Transmission Date: 20250409
  Serious: Yes (Other)
  Sender: GILEAD
  Company Number: CN-GILEAD-2025-0705124

PATIENT
  Age: 64 Year
  Sex: Female

DRUGS (3)
  1. SACITUZUMAB GOVITECAN-HZIY [Suspect]
     Active Substance: SACITUZUMAB GOVITECAN-HZIY
     Indication: Breast cancer
     Dosage: 540 MG (D1, D8)
     Route: 041
     Dates: start: 20250221
  2. PEMBROLIZUMAB [Concomitant]
     Active Substance: PEMBROLIZUMAB
     Dosage: 200 MG (200MG D1)
     Route: 065
     Dates: start: 20250221
  3. BEVACIZUMAB [Concomitant]
     Active Substance: BEVACIZUMAB
     Dosage: 400 MG, Q3WK (400MG D1, EVERY THREE WEEKS (Q3W))
     Route: 065
     Dates: start: 20250221

REACTIONS (3)
  - Cholangiocarcinoma [Unknown]
  - Metastases to liver [Unknown]
  - Type 2 diabetes mellitus [Unknown]
